FAERS Safety Report 5420335-3 (Version None)
Quarter: 2007Q3

REPORT INFORMATION
  Report Type: 
  Country: None (occurrence: None)
  Receive Date: 20070820
  Receipt Date: 20070809
  Transmission Date: 20080115
  Serious: Yes (Death)
  Sender: FDA-Public Use
  Company Number: MW-GILEAD-2006-0010781

PATIENT
  Age: 50 Year
  Sex: Male
  Weight: 46 kg

DRUGS (8)
  1. EMTRICITABINE [Suspect]
     Indication: HIV INFECTION
     Route: 048
     Dates: start: 20061006, end: 20061113
  2. TENOFOVIR DISOPROXIL FUMARATE [Suspect]
     Indication: HIV INFECTION
     Route: 048
     Dates: start: 20061006, end: 20061113
  3. NEVIRAPINE [Suspect]
     Indication: HIV INFECTION
     Route: 048
     Dates: start: 20061103, end: 20061113
  4. NEVIRAPINE [Suspect]
     Route: 048
     Dates: start: 20061020, end: 20061102
  5. EFAVIRENZ [Suspect]
     Indication: HIV INFECTION
     Route: 048
     Dates: start: 20061006, end: 20061010
  6. FERROUS SULFATE TAB [Concomitant]
  7. PCM [Concomitant]
     Indication: PYREXIA
     Dates: end: 20061011
  8. CIPROFLOXACIN [Concomitant]
     Dates: end: 20061016

REACTIONS (1)
  - STEVENS-JOHNSON SYNDROME [None]
